FAERS Safety Report 12272528 (Version 1)
Quarter: 2016Q2

REPORT INFORMATION
  Report Type: Not Available
  Country: None (occurrence: US)
  Receive Date: 20160415
  Receipt Date: 20160415
  Transmission Date: 20160815
  Serious: No
  Sender: FDA-Public Use
  Company Number: US-AKORN-26362

PATIENT
  Sex: Female

DRUGS (1)
  1. ZIOPTAN [Suspect]
     Active Substance: TAFLUPROST

REACTIONS (7)
  - Swelling face [Not Recovered/Not Resolved]
  - Ocular hyperaemia [Unknown]
  - Hypersensitivity [Unknown]
  - Eye irritation [Unknown]
  - Eye swelling [Unknown]
  - Yellow skin [Unknown]
  - Eye pain [Unknown]
